FAERS Safety Report 13210999 (Version 1)
Quarter: 2017Q1

REPORT INFORMATION
  Report Type: Spontaneous
  Country: US (occurrence: US)
  Receive Date: 20170209
  Receipt Date: 20170209
  Transmission Date: 20170428
  Serious: Yes (Other)
  Sender: FDA-Public Use
  Company Number: None

PATIENT
  Sex: Female

DRUGS (1)
  1. IBRANCE [Suspect]
     Active Substance: PALBOCICLIB
     Indication: MALAISE
     Dosage: IBRANCE 75MG TAKE 1 CAPSULE ORAL
     Route: 048
     Dates: start: 20161001

REACTIONS (1)
  - Fatigue [None]
